FAERS Safety Report 5351341-5 (Version None)
Quarter: 2007Q2

REPORT INFORMATION
  Report Type: 
  Country: None (occurrence: None)
  Receive Date: 20070608
  Receipt Date: 20070516
  Transmission Date: 20071010
  Serious: Yes (Hospitalization)
  Sender: FDA-Public Use
  Company Number: UA-BOEHRINGER INGELHEIM PHARMACEUTICALS, INC.-2007-AP-00185AP

PATIENT
  Age: 56 Year
  Sex: Male

DRUGS (7)
  1. AGGRENOX [Suspect]
     Indication: ISCHAEMIC STROKE
     Dosage: 200/25 MG
     Route: 048
     Dates: start: 20070301, end: 20070308
  2. FRAXIPARINE [Concomitant]
  3. NO-SPA [Concomitant]
  4. ACTOVEGIN [Concomitant]
  5. RANITIDINE [Concomitant]
  6. RETABOLIL [Concomitant]
  7. LIPRASIDE [Concomitant]

REACTIONS (2)
  - ALANINE AMINOTRANSFERASE INCREASED [None]
  - ASPARTATE AMINOTRANSFERASE INCREASED [None]
